FAERS Safety Report 17979074 (Version 1)
Quarter: 2020Q3

REPORT INFORMATION
  Report Type: Spontaneous
  Country: JP (occurrence: JP)
  Receive Date: 20200703
  Receipt Date: 20200703
  Transmission Date: 20201103
  Serious: Yes (Other)
  Sender: FDA-Public Use
  Company Number: JP-PFIZER INC-2020251505

PATIENT
  Age: 72 Year

DRUGS (1)
  1. DIFLUCAN [Suspect]
     Active Substance: FLUCONAZOLE
     Dosage: 400 MG, 1X/DAY (4 CAPSULES DIVIDED IN ONE TIME)

REACTIONS (2)
  - Renal impairment [Unknown]
  - Creatinine renal clearance decreased [Unknown]
